FAERS Safety Report 18739803 (Version 1)
Quarter: 2021Q1

REPORT INFORMATION
  Report Type: Spontaneous
  Country: US (occurrence: US)
  Receive Date: 20210113
  Receipt Date: 20210113
  Transmission Date: 20210419
  Serious: Yes (Other)
  Sender: FDA-Public Use
  Company Number: None

PATIENT
  Age: 44 Year
  Sex: Female
  Weight: 58.5 kg

DRUGS (3)
  1. LOESTRIN FE 1/20 [Concomitant]
     Active Substance: ETHINYL ESTRADIOL\NORETHINDRONE ACETATE
  2. VITAMIN D, C AND B12 [Concomitant]
  3. FLUTICASONE PROPIONATE NASAL SPRAY USP [Suspect]
     Active Substance: FLUTICASONE PROPIONATE
     Indication: HYPERSENSITIVITY
     Dosage: ?          OTHER STRENGTH:MCG;QUANTITY:120 SPRAY(S);?
     Route: 055
     Dates: start: 20200102, end: 20210113

REACTIONS (1)
  - Cataract [None]

NARRATIVE: CASE EVENT DATE: 20210113
